FAERS Safety Report 9760380 (Version 2)
Quarter: 2013Q4

REPORT INFORMATION
  Report Type: Spontaneous
  Country: US (occurrence: US)
  Receive Date: 20131216
  Receipt Date: 20131216
  Transmission Date: 20140711
  Serious: No
  Sender: FDA-Public Use
  Company Number: US-GILEAD-2010-0029511

PATIENT
  Sex: Female

DRUGS (7)
  1. LETAIRIS [Suspect]
     Indication: PULMONARY ARTERIAL HYPERTENSION
     Route: 048
     Dates: start: 20100415
  2. REVATIO [Concomitant]
  3. LASIX [Concomitant]
  4. KCL [Concomitant]
  5. ACTONEL [Concomitant]
  6. CALCIUM [Concomitant]
  7. ASPIRIN [Concomitant]

REACTIONS (2)
  - Headache [Unknown]
  - Constipation [Unknown]
